FAERS Safety Report 8389166-9 (Version None)
Quarter: 2012Q2

REPORT INFORMATION
  Report Type: 
  Country: None (occurrence: None)
  Receive Date: 20120528
  Receipt Date: 20120524
  Transmission Date: 20120825
  Serious: Yes (Death, Hospitalization)
  Sender: FDA-Public Use
  Company Number: PHHY2012TR044628

PATIENT
  Weight: 1.6 kg

DRUGS (1)
  1. CARBAMAZEPINE [Suspect]
     Indication: EPILEPSY
     Dosage: 300 MG, DAILY

REACTIONS (31)
  - SINGLE UMBILICAL ARTERY [None]
  - PROMINENT EPICANTHAL FOLDS [None]
  - MICROGNATHIA [None]
  - ADACTYLY [None]
  - PREMATURE RUPTURE OF MEMBRANES [None]
  - CONGENITAL INTESTINAL MALFORMATION [None]
  - CONGENITAL PYELOCALIECTASIS [None]
  - CONGENITAL FACIAL NERVE HYPOPLASIA [None]
  - LOW BIRTH WEIGHT BABY [None]
  - RENAL FAILURE [None]
  - CONGENITAL NOSE MALFORMATION [None]
  - OLIGOHYDRAMNIOS [None]
  - ANAL ATRESIA [None]
  - TOOTH DEVELOPMENT DISORDER [None]
  - MICROCEPHALY [None]
  - HEMIHYPERTROPHY [None]
  - KLIPPEL-FEIL SYNDROME [None]
  - RESPIRATORY FAILURE [None]
  - LOW SET EARS [None]
  - GENITALIA EXTERNAL AMBIGUOUS [None]
  - CONGENITAL RENAL CYST [None]
  - RENAL APLASIA [None]
  - PREMATURE BABY [None]
  - HIGH ARCHED PALATE [None]
  - TALIPES [None]
  - DYSMORPHISM [None]
  - VENTRICULAR SEPTAL DEFECT [None]
  - FOETAL ANTICONVULSANT SYNDROME [None]
  - CONGENITAL NAIL DISORDER [None]
  - CONGENITAL HYDRONEPHROSIS [None]
  - MATERNAL EXPOSURE TIMING UNSPECIFIED [None]
